FAERS Safety Report 7400972-7 (Version None)
Quarter: 2011Q2

REPORT INFORMATION
  Report Type: 
  Country: None (occurrence: None)
  Receive Date: 20110407
  Receipt Date: 20110325
  Transmission Date: 20111010
  Serious: Yes (Other)
  Sender: FDA-Public Use
  Company Number: PHHY2011US16295

PATIENT
  Sex: Male
  Weight: 27.25 kg

DRUGS (8)
  1. ALBUTEROL SULFATE [Concomitant]
     Indication: WHEEZING
  2. TRIAMCINOLONE ACETONIDE [Concomitant]
     Dosage: APPLY TO AFFECTED REA TWICE A DAY
  3. EXJADE [Suspect]
     Indication: SICKLE CELL ANAEMIA
     Dosage: 500 MG DAILY
     Route: 048
  4. AMOXICILLIN [Concomitant]
     Dosage: 1 PIL TWICE PER DAY
  5. CETIRIZINE HCL [Concomitant]
     Dosage: 1 TEASPOON DAILY, SEASONALLY
  6. ALBUTEROL SULFATE [Concomitant]
     Indication: COUGH
  7. FOLIC ACID [Concomitant]
     Dosage: 1 MG, UNK
  8. FLONASE [Concomitant]
     Dosage: 1 SPRAY IN EACH NOSTRIL AT BED TIME SEASONALLY

REACTIONS (7)
  - GAIT DISTURBANCE [None]
  - BRONCHIAL HYPERREACTIVITY [None]
  - OTITIS MEDIA [None]
  - VISUAL ACUITY REDUCED [None]
  - ECZEMA [None]
  - RHINITIS ALLERGIC [None]
  - DEAFNESS [None]
